FAERS Safety Report 10723943 (Version 5)
Quarter: 2017Q3

REPORT INFORMATION
  Report Type: Report from Study
  Country: GR (occurrence: GR)
  Receive Date: 20150120
  Receipt Date: 20170809
  Transmission Date: 20171127
  Serious: Yes (Hospitalization, Other)
  Sender: FDA-Public Use
  Company Number: PHHY2015GR006073

PATIENT
  Age: 27 Year
  Sex: Male
  Weight: 54 kg

DRUGS (4)
  1. EXJADE [Suspect]
     Active Substance: DEFERASIROX
     Indication: IRON OVERLOAD
  2. PONSTAN [Concomitant]
     Active Substance: MEFENAMIC ACID
     Indication: PYREXIA
     Dosage: 500 MG, BID
     Route: 065
     Dates: start: 20150113
  3. EXJADE [Suspect]
     Active Substance: DEFERASIROX
     Indication: THALASSAEMIA
     Dosage: 34.5 MG/KG, QD
     Route: 048
     Dates: start: 20140607, end: 20150115
  4. SALOSPIR [Concomitant]
     Active Substance: ASPIRIN
     Indication: SPLENECTOMY
     Dosage: 100 MG, QD
     Route: 065
     Dates: start: 201002, end: 20150115

REACTIONS (9)
  - Pyrexia [Recovered/Resolved]
  - Myalgia [Recovered/Resolved]
  - Blood urea increased [Recovered/Resolved]
  - Infection [Unknown]
  - Dehydration [Recovered/Resolved]
  - Diarrhoea [Recovered/Resolved]
  - Blood creatinine increased [Unknown]
  - Escherichia bacteraemia [Recovered/Resolved]
  - Sepsis [Recovered/Resolved]

NARRATIVE: CASE EVENT DATE: 20150115
